FAERS Safety Report 19900164 (Version 1)
Quarter: 2021Q3

REPORT INFORMATION
  Report Type: Spontaneous
  Country: JP (occurrence: JP)
  Receive Date: 20210930
  Receipt Date: 20210930
  Transmission Date: 20211014
  Serious: Yes (Death, Life-Threatening, Hospitalization)
  Sender: FDA-Public Use
  Company Number: JP-MYLANLABS-2021M1066761

PATIENT
  Age: 63 Year
  Sex: Male

DRUGS (3)
  1. AMPICILLIN [Suspect]
     Active Substance: AMPICILLIN
     Indication: TERTIARY SYPHILIS
     Dosage: 8 GRAM, QD, FOR 2 WEEKS
     Route: 065
     Dates: start: 2014
  2. PREDNISOLONE. [Suspect]
     Active Substance: PREDNISOLONE
     Indication: VASCULITIS
     Dosage: 0.8 MILLIGRAM/KILOGRAM, QD, 35MG
     Route: 065
     Dates: start: 2014
  3. AMPICILLIN [Suspect]
     Active Substance: AMPICILLIN
     Indication: TERTIARY SYPHILIS

REACTIONS (10)
  - Hypogammaglobulinaemia [Fatal]
  - Pneumonia [Fatal]
  - Depressed level of consciousness [Fatal]
  - Pseudomonas infection [Fatal]
  - Acute respiratory distress syndrome [Fatal]
  - Blood pressure abnormal [Fatal]
  - Cytomegalovirus infection [Fatal]
  - Drug ineffective [Unknown]
  - Osteonecrosis [Unknown]
  - Adrenal insufficiency [Fatal]

NARRATIVE: CASE EVENT DATE: 2020
